FAERS Safety Report 26101742 (Version 1)
Quarter: 2025Q4

REPORT INFORMATION
  Report Type: Spontaneous
  Country: US (occurrence: None)
  Receive Date: 20251128
  Receipt Date: 20251128
  Transmission Date: 20260119
  Serious: Yes (Other)
  Sender: APOTEX
  Company Number: US-APOTEX-2025AP033239

PATIENT
  Age: 79 Year
  Sex: Female

DRUGS (1)
  1. ALENDRONATE [Suspect]
     Active Substance: ALENDRONATE SODIUM
     Indication: Osteoporosis
     Dosage: 70 MILLIGRAM, Q.WK.
     Dates: start: 202202, end: 202404

REACTIONS (1)
  - Osteonecrosis [Unknown]

NARRATIVE: CASE EVENT DATE: 20240401
